FAERS Safety Report 7423390-4 (Version None)
Quarter: 2011Q2

REPORT INFORMATION
  Report Type: 
  Country: None (occurrence: None)
  Receive Date: 20110419
  Receipt Date: 20110406
  Transmission Date: 20111010
  Serious: Yes (Hospitalization)
  Sender: FDA-Public Use
  Company Number: PHHY2011BR29509

PATIENT
  Sex: Female

DRUGS (2)
  1. DIOVAN HCT [Suspect]
     Dosage: 160 MG VALS AND 12.5 MG HYDR (AT NIGHT)
     Route: 048
     Dates: start: 20100701
  2. DIOVAN AMLO FIX [Suspect]
     Dosage: 160 MG VALS AND 5 MG AMLO (IN THE MORNING)
     Route: 048

REACTIONS (3)
  - OEDEMA PERIPHERAL [None]
  - OSTEOMYELITIS [None]
  - WALKING AID USER [None]
